FAERS Safety Report 5264621-9 (Version None)
Quarter: 2007Q1

REPORT INFORMATION
  Report Type: 
  Country: None (occurrence: None)
  Receive Date: 20070314
  Receipt Date: 20070301
  Transmission Date: 20070707
  Serious: Yes (Disabling, Other)
  Sender: FDA-Public Use
  Company Number: PHNU2007DE01044

PATIENT
  Sex: Male
  Weight: 89 kg

DRUGS (1)
  1. ZOMETA [Suspect]
     Indication: OSTEOLYSIS
     Dosage: 4 MG, UNK
     Route: 042
     Dates: end: 20070123

REACTIONS (1)
  - OSTEONECROSIS [None]
